FAERS Safety Report 15378772 (Version 2)
Quarter: 2019Q2

REPORT INFORMATION
  Report Type: Report from Study
  Country: US (occurrence: US)
  Receive Date: 20180913
  Receipt Date: 20190419
  Transmission Date: 20190711
  Serious: Yes (Death, Hospitalization)
  Sender: FDA-Public Use
  Company Number: US-PFIZER INC-2011033731

PATIENT
  Age: 78 Year
  Sex: Male
  Weight: 87.2 kg

DRUGS (9)
  1. KEPPRA [Concomitant]
     Active Substance: LEVETIRACETAM
  2. PRILOSEC [Concomitant]
     Active Substance: OMEPRAZOLE MAGNESIUM
     Dosage: UNK
     Dates: start: 20110124
  3. FINASTERIDE. [Concomitant]
     Active Substance: FINASTERIDE
  4. METOPROLOL XL [Concomitant]
     Active Substance: METOPROLOL SUCCINATE
  5. PALBOCICLIB [Suspect]
     Active Substance: PALBOCICLIB
     Indication: GLIOBLASTOMA MULTIFORME
     Dosage: 125 MG, CYCLIC, 3 WKS ON/ 1 WK OFF
     Dates: start: 20110120
  6. DECADRON [Suspect]
     Active Substance: DEXAMETHASONE
     Dosage: UNK
     Dates: start: 20110124
  7. AMIODARONE [Concomitant]
     Active Substance: AMIODARONE
  8. LIPITOR [Concomitant]
     Active Substance: ATORVASTATIN CALCIUM
  9. LEVOTHYROXINE. [Concomitant]
     Active Substance: LEVOTHYROXINE

REACTIONS (3)
  - Lung infection [Fatal]
  - Abdominal pain [Unknown]
  - Stomatitis [Unknown]

NARRATIVE: CASE EVENT DATE: 20110212
